FAERS Safety Report 24143274 (Version 1)
Quarter: 2024Q3

REPORT INFORMATION
  Report Type: Spontaneous
  Country: DE (occurrence: DE)
  Receive Date: 20240726
  Receipt Date: 20240726
  Transmission Date: 20241016
  Serious: Yes (Other)
  Sender: MERCK
  Company Number: DE-009507513-2407DEU012754

PATIENT
  Sex: Female

DRUGS (1)
  1. KEYTRUDA [Suspect]
     Active Substance: PEMBROLIZUMAB
     Indication: Colorectal cancer metastatic
     Dosage: UNK, EVERY 6 WEEKS
     Dates: start: 202101

REACTIONS (1)
  - Hepatectomy [Unknown]

NARRATIVE: CASE EVENT DATE: 20221001
